FAERS Safety Report 9768619 (Version 1)
Quarter: 2013Q4

REPORT INFORMATION
  Report Type: Spontaneous
  Country: BR (occurrence: BR)
  Receive Date: 20131218
  Receipt Date: 20131218
  Transmission Date: 20140711
  Serious: Yes (Other)
  Sender: FDA-Public Use
  Company Number: BR-PFIZER INC-2013357000

PATIENT
  Age: 51 Year
  Sex: Female

DRUGS (2)
  1. PRISTIQ [Suspect]
     Indication: DEPRESSED MOOD
     Dosage: 100 MG, DAILY
     Dates: start: 201303
  2. PRISTIQ [Suspect]
     Indication: VIITH NERVE PARALYSIS

REACTIONS (4)
  - Keratitis [Unknown]
  - Dry eye [Unknown]
  - Migraine [Unknown]
  - Off label use [Not Recovered/Not Resolved]
